FAERS Safety Report 21696106 (Version 1)
Quarter: 2022Q4

REPORT INFORMATION
  Report Type: Spontaneous
  Country: CN (occurrence: CN)
  Receive Date: 20221207
  Receipt Date: 20221207
  Transmission Date: 20230112
  Serious: Yes (Other)
  Sender: FDA-Public Use
  Company Number: CN-BAUSCH-BL-2022-026447

PATIENT
  Age: 61 Year
  Sex: Female

DRUGS (11)
  1. DEXAMETHASONE [Suspect]
     Active Substance: DEXAMETHASONE
     Indication: Plasma cell myeloma
     Dosage: RECEIVED IN VDCEP REGIMEN
     Route: 065
     Dates: start: 2018, end: 2018
  2. DEXAMETHASONE [Suspect]
     Active Substance: DEXAMETHASONE
     Indication: Plasma cell myeloma
     Dosage: RECEIVED IN BORTEZOMIB, LENALIDOMIDE AND DEXAMETHASONE (VRD) REGIMEN
     Route: 065
     Dates: start: 2018, end: 2018
  3. DEXAMETHASONE [Suspect]
     Active Substance: DEXAMETHASONE
     Dosage: RECEIVED IN BORTEZOMIB, CYCLOPHOSPHAMIDE AND DEXAMETHASONE (VCD) REGIMEN
     Route: 065
     Dates: start: 2018, end: 2018
  4. BORTEZOMIB [Suspect]
     Active Substance: BORTEZOMIB
     Indication: Plasma cell myeloma
     Dosage: RECEIVED IN BORTEZOMIB, LENALIDOMIDE AND DEXAMETHASONE (VRD) REGIMEN
     Route: 065
     Dates: start: 2018, end: 2018
  5. BORTEZOMIB [Suspect]
     Active Substance: BORTEZOMIB
     Dosage: RECEIVED IN BORTEZOMIB, CYCLOPHOSPHAMIDE AND DEXAMETHASONE (VCD) REGIMEN
     Route: 065
     Dates: start: 2018, end: 2018
  6. BORTEZOMIB [Suspect]
     Active Substance: BORTEZOMIB
     Dosage: RECEIVED IN VDCEP REGIMEN
     Route: 065
     Dates: start: 2018, end: 2018
  7. LENALIDOMIDE [Suspect]
     Active Substance: LENALIDOMIDE
     Indication: Plasma cell myeloma
     Dosage: RECEIVED IN BORTEZOMIB, LENALIDOMIDE AND DEXAMETHASONE (VRD) REGIMEN
     Route: 065
     Dates: start: 2018, end: 2018
  8. CYCLOPHOSPHAMIDE [Suspect]
     Active Substance: CYCLOPHOSPHAMIDE
     Indication: Plasma cell myeloma
     Dosage: RECEIVED IN BORTEZOMIB, CYCLOPHOSPHAMIDE AND DEXAMETHASONE (VCD) REGIMEN
     Route: 065
     Dates: start: 2018, end: 2018
  9. ETOPOSIDE [Suspect]
     Active Substance: ETOPOSIDE
     Indication: Plasma cell myeloma
     Dosage: RECEIVED IN VDCEP REGIMEN
     Route: 065
     Dates: start: 2018, end: 2018
  10. CISPLATIN [Suspect]
     Active Substance: CISPLATIN
     Indication: Plasma cell myeloma
     Dosage: RECEIVED IN VDCEP REGIMEN
     Route: 065
     Dates: start: 2018, end: 2018
  11. CYTARABINE [Suspect]
     Active Substance: CYTARABINE
     Indication: Plasma cell myeloma
     Dosage: RECEIVED IN VDCEP REGIMEN
     Route: 065
     Dates: start: 2018, end: 2018

REACTIONS (1)
  - Therapy partial responder [Unknown]
